FAERS Safety Report 10334200 (Version 1)
Quarter: 2014Q3

REPORT INFORMATION
  Report Type: Spontaneous
  Country: US (occurrence: None)
  Receive Date: 20140721
  Receipt Date: 20140721
  Transmission Date: 20150326
  Serious: No
  Sender: FDA-Public Use
  Company Number: None

PATIENT
  Age: 40 Year
  Sex: Female
  Weight: 72.58 kg

DRUGS (2)
  1. PRISTIQ EXTENDED RELEASE [Suspect]
     Active Substance: DESVENLAFAXINE SUCCINATE
     Indication: MYALGIA
     Route: 048
     Dates: start: 20140101, end: 20140718
  2. PRISTIQ EXTENDED RELEASE [Suspect]
     Active Substance: DESVENLAFAXINE SUCCINATE
     Indication: DEPRESSION
     Route: 048
     Dates: start: 20140101, end: 20140718

REACTIONS (10)
  - Paraesthesia [None]
  - Lethargy [None]
  - Haemorrhage [None]
  - Influenza like illness [None]
  - Headache [None]
  - Abdominal discomfort [None]
  - Hyperhidrosis [None]
  - Dizziness [None]
  - Hypertension [None]
  - Serotonin syndrome [None]
